APPROVED DRUG PRODUCT: RANITIDINE HYDROCHLORIDE
Active Ingredient: RANITIDINE HYDROCHLORIDE
Strength: EQ 15MG BASE/ML
Dosage Form/Route: SYRUP;ORAL
Application: A076124 | Product #001
Applicant: ACTAVIS MID ATLANTIC LLC
Approved: Feb 21, 2007 | RLD: No | RS: No | Type: DISCN